FAERS Safety Report 25362865 (Version 1)
Quarter: 2025Q2

REPORT INFORMATION
  Report Type: Spontaneous
  Country: US (occurrence: None)
  Receive Date: 20250525
  Receipt Date: 20250525
  Transmission Date: 20250716
  Serious: Yes (Hospitalization, Other)
  Sender: FDA-CTU
  Company Number: None

PATIENT
  Age: 28 Year
  Sex: Female
  Weight: 54.4 kg

DRUGS (3)
  1. CEFTRIAXONE SODIUM [Suspect]
     Active Substance: CEFTRIAXONE SODIUM
     Indication: Urinary tract infection
     Dosage: 1 G GRAM(S) DAILY INTRAVENOUS
     Route: 042
     Dates: start: 20250521
  2. acetaminophen 975 mg oral [Concomitant]
     Dates: start: 20250521
  3. ondansetron 4 mg IV injection [Concomitant]
     Dates: start: 20250521

REACTIONS (4)
  - Vomiting [None]
  - Syncope [None]
  - Hypotension [None]
  - Hypersensitivity [None]

NARRATIVE: CASE EVENT DATE: 20250521
